FAERS Safety Report 10213998 (Version 2)
Quarter: 2014Q2

REPORT INFORMATION
  Report Type: Spontaneous
  Country: IT (occurrence: IT)
  Receive Date: 20140603
  Receipt Date: 20140612
  Transmission Date: 20141212
  Serious: Yes (Hospitalization)
  Sender: FDA-Public Use
  Company Number: IT-WATSON-2014-11350

PATIENT
  Age: 88 Year
  Sex: Female

DRUGS (11)
  1. LORAZEPAM (UNKNOWN) [Suspect]
     Indication: ANXIOLYTIC THERAPY
     Dosage: 20 GTT, UNK
     Dates: start: 20140401, end: 20140402
  2. CITALOPRAM (UNKNOWN) [Suspect]
     Indication: DEPRESSION
     Dosage: 20 MG, DAILY
     Route: 048
     Dates: end: 20140402
  3. CITALOPRAM (UNKNOWN) [Suspect]
     Indication: ANXIETY
  4. LYRICA [Concomitant]
     Indication: PRODUCT USED FOR UNKNOWN INDICATION
     Dosage: 75 MG, UNKNOWN
     Route: 048
     Dates: end: 20140402
  5. LANOXIN [Concomitant]
     Indication: PRODUCT USED FOR UNKNOWN INDICATION
     Dosage: 0.125 MG, UNKNOWN
     Route: 048
  6. CARDIOASPIRIN [Concomitant]
     Indication: PRODUCT USED FOR UNKNOWN INDICATION
     Dosage: 100 MG, UNKNOWN
     Route: 048
  7. TAREG [Concomitant]
     Indication: PRODUCT USED FOR UNKNOWN INDICATION
     Dosage: 80 MG, UNKNOWN
     Route: 048
  8. LANSOPRAZOLE [Concomitant]
     Indication: ANXIETY
     Dosage: 30 MG, UNKNOWN
     Route: 048
  9. LANSOPRAZOLE [Concomitant]
     Indication: DEPRESSION
  10. ASA [Concomitant]
     Indication: PRODUCT USED FOR UNKNOWN INDICATION
     Dosage: 100 MG, UNK
     Route: 065
  11. SERENASE                           /00027401/ [Concomitant]
     Indication: PRODUCT USED FOR UNKNOWN INDICATION
     Dosage: 16 GTT, UNK
     Route: 065
     Dates: end: 20140401

REACTIONS (4)
  - Disorientation [Recovered/Resolved]
  - Overdose [Recovered/Resolved]
  - Sopor [Recovered/Resolved]
  - Bradyphrenia [Recovered/Resolved]
